FAERS Safety Report 24380712 (Version 1)
Quarter: 2024Q3

REPORT INFORMATION
  Report Type: Spontaneous
  Country: DE (occurrence: DE)
  Receive Date: 20240930
  Receipt Date: 20240930
  Transmission Date: 20241017
  Serious: Yes (Other)
  Sender: BRISTOL MYERS SQUIBB
  Company Number: DE-BRISTOL-MYERS SQUIBB COMPANY-2024-152953

PATIENT

DRUGS (7)
  1. NIVOLUMAB [Suspect]
     Active Substance: NIVOLUMAB
     Indication: Non-small cell lung cancer
     Dosage: 360MG NIVOLUMAB IN 100ML NACL0.9%
     Dates: start: 20210427, end: 202211
  2. IPILIMUMAB [Suspect]
     Active Substance: IPILIMUMAB
     Indication: Non-small cell lung cancer
     Dates: start: 20210427
  3. CYCLOPHOSPHAMIDE [Suspect]
     Active Substance: CYCLOPHOSPHAMIDE
     Indication: Non-small cell lung cancer
     Dates: start: 20210427
  4. DEXAMETHASONE [Concomitant]
     Active Substance: DEXAMETHASONE
     Indication: Product used for unknown indication
     Dosage: 8MG DEXAMETHASONE IN 100ML NACL0.9%
     Dates: start: 20210427
  5. GRANISETRON [Concomitant]
     Active Substance: GRANISETRON
     Indication: Product used for unknown indication
     Dates: start: 20210427
  6. CARBOPLATIN [Concomitant]
     Active Substance: CARBOPLATIN
     Indication: Product used for unknown indication
     Dosage: 609.5MG (AUC 5) CARBOPLATIN AUC 5 IN 500ML G5%
     Dates: start: 20210427
  7. PEMETREXED [Concomitant]
     Active Substance: PEMETREXED
     Indication: Product used for unknown indication
     Dosage: 725MG (75MG/KG SQM) PEMETREXED IN 100ML NACL0.9%
     Dates: start: 20210427

REACTIONS (5)
  - Diarrhoea [Unknown]
  - Muscular weakness [Unknown]
  - Non-small cell lung cancer metastatic [Unknown]
  - Brain oedema [Unknown]
  - Non-small cell lung cancer [Unknown]

NARRATIVE: CASE EVENT DATE: 20210101
